FAERS Safety Report 24874026 (Version 2)
Quarter: 2025Q1

REPORT INFORMATION
  Report Type: Spontaneous
  Country: US (occurrence: US)
  Receive Date: 20250122
  Receipt Date: 20250217
  Transmission Date: 20250409
  Serious: No
  Sender: ROCHE
  Company Number: US-ROCHE-10000185774

PATIENT
  Sex: Male
  Weight: 109.77 kg

DRUGS (1)
  1. HEMLIBRA [Suspect]
     Active Substance: EMICIZUMAB-KXWH
     Indication: Factor VIII deficiency
     Dosage: STRENGTH- 105MG/0.7ML
     Route: 058
     Dates: start: 202207

REACTIONS (3)
  - Off label use [Unknown]
  - Injury [Unknown]
  - Hydrocele [Unknown]
